FAERS Safety Report 4402216-7 (Version None)
Quarter: 2004Q3

REPORT INFORMATION
  Report Type: 
  Country: None (occurrence: None)
  Receive Date: 20040720
  Receipt Date: 20040712
  Transmission Date: 20050211
  Serious: Yes (Hospitalization)
  Sender: FDA-Public Use
  Company Number: 200412690FR

PATIENT
  Age: 64 Year
  Sex: Male

DRUGS (5)
  1. LASILIX FAIBLE [Suspect]
     Indication: ESSENTIAL HYPERTENSION
     Route: 048
  2. IXEL [Suspect]
     Indication: DYSTHYMIC DISORDER
     Route: 048
  3. IMOVANE [Concomitant]
     Route: 048
  4. TERCIAN [Concomitant]
     Indication: DYSTHYMIC DISORDER
     Route: 048
  5. KENZEN [Concomitant]
     Indication: ESSENTIAL HYPERTENSION
     Route: 048

REACTIONS (9)
  - BLOOD POTASSIUM DECREASED [None]
  - BLOOD SODIUM DECREASED [None]
  - CEREBRAL HAEMATOMA [None]
  - CONJUNCTIVAL HAEMORRHAGE [None]
  - CONVULSION [None]
  - DEPRESSED LEVEL OF CONSCIOUSNESS [None]
  - HEAD INJURY [None]
  - HUMERUS FRACTURE [None]
  - ROAD TRAFFIC ACCIDENT [None]
